FAERS Safety Report 6925420-2 (Version None)
Quarter: 2010Q3

REPORT INFORMATION
  Report Type: 
  Country: None (occurrence: None)
  Receive Date: 20100816
  Receipt Date: 20100806
  Transmission Date: 20110219
  Serious: Yes (Other)
  Sender: FDA-Public Use
  Company Number: GB-PFIZER INC-2010099065

PATIENT
  Age: 65 Year
  Sex: Female

DRUGS (4)
  1. LIPITOR [Suspect]
     Dosage: 10 MG, 1X/DAY
     Dates: start: 20020101
  2. LERCANIDIPINE [Concomitant]
     Dosage: 10 MG, 1X/DAY
  3. MOXONIDINE [Concomitant]
     Dosage: 200 UG, 1X/DAY
  4. VALSARTAN [Concomitant]
     Dosage: 80 MG, 1X/DAY

REACTIONS (3)
  - HYPOAESTHESIA [None]
  - INSOMNIA [None]
  - PARAESTHESIA [None]
